FAERS Safety Report 8901572 (Version 4)
Quarter: 2013Q2

REPORT INFORMATION
  Report Type: Spontaneous
  Country: US (occurrence: None)
  Receive Date: 20121105
  Receipt Date: 20130509
  Transmission Date: 20140414
  Serious: Yes (Death, Hospitalization)
  Sender: FDA-Public Use
  Company Number: 141007

PATIENT
  Age: 61 Year
  Sex: Female
  Weight: 57 kg

DRUGS (1)
  1. LEUCOVORIN CALCIUM [Suspect]
     Indication: COLORECTAL CANCER METASTATIC
     Dosage: 400 MG/M2
     Route: 042
     Dates: start: 20120507, end: 2013

REACTIONS (10)
  - Abdominal pain [None]
  - Thrombotic microangiopathy [None]
  - Haematemesis [None]
  - Multi-organ failure [None]
  - Colorectal cancer [None]
  - Malignant neoplasm progression [None]
  - Renal tubular necrosis [None]
  - Haemorrhage [None]
  - Metastases to liver [None]
  - Metastases to lymph nodes [None]
